FAERS Safety Report 10997790 (Version 2)
Quarter: 2015Q2

REPORT INFORMATION
  Report Type: Spontaneous
  Country: US (occurrence: US)
  Receive Date: 20150408
  Receipt Date: 20150409
  Transmission Date: 20150821
  Serious: Yes (Hospitalization, Other)
  Sender: FDA-Public Use
  Company Number: US-DRREDDYS-USA/USA/15/0047024

PATIENT
  Age: 57 Year
  Sex: Male
  Weight: 127 kg

DRUGS (1)
  1. HABITROL [Suspect]
     Active Substance: NICOTINE
     Indication: SMOKING CESSATION THERAPY
     Route: 062
     Dates: start: 20150321, end: 20150327

REACTIONS (7)
  - Nicotine dependence [Unknown]
  - Fatigue [Recovering/Resolving]
  - Anxiety [Recovering/Resolving]
  - Blood pressure increased [Unknown]
  - Feeling abnormal [Unknown]
  - Product quality issue [Unknown]
  - Dyspepsia [Recovering/Resolving]

NARRATIVE: CASE EVENT DATE: 20150329
